FAERS Safety Report 10388153 (Version 4)
Quarter: 2015Q1

REPORT INFORMATION
  Report Type: Spontaneous
  Country: US (occurrence: US)
  Receive Date: 20140815
  Receipt Date: 20150203
  Transmission Date: 20150720
  Serious: Yes (Hospitalization, Other)
  Sender: FDA-Public Use
  Company Number: US-GLAXOSMITHKLINE-A1083481A

PATIENT
  Age: 59 Year
  Sex: Female

DRUGS (1)
  1. VOTRIENT [Suspect]
     Active Substance: PAZOPANIB HYDROCHLORIDE
     Indication: RENAL CANCER
     Dosage: 200 MG. 800 MG DAILY
     Route: 065
     Dates: start: 20140717

REACTIONS (9)
  - Hospitalisation [Unknown]
  - Drug dose omission [Unknown]
  - Abdominal pain upper [Unknown]
  - Back pain [Unknown]
  - Pain [Unknown]
  - Renal disorder [Unknown]
  - Nausea [Unknown]
  - Lung disorder [Unknown]
  - Disease progression [Unknown]

NARRATIVE: CASE EVENT DATE: 20140805
